FAERS Safety Report 23993413 (Version 1)
Quarter: 2024Q2

REPORT INFORMATION
  Report Type: Report from Study
  Country: CN (occurrence: CN)
  Receive Date: 20240620
  Receipt Date: 20240620
  Transmission Date: 20240715
  Serious: Yes (Hospitalization)
  Sender: FDA-Public Use
  Company Number: CN-Merck Healthcare KGaA-2024031916

PATIENT
  Age: 78 Year
  Sex: Female

DRUGS (5)
  1. METFORMIN [Suspect]
     Active Substance: METFORMIN HYDROCHLORIDE
     Indication: Type 2 diabetes mellitus
     Route: 048
  2. ACARBOSE [Suspect]
     Active Substance: ACARBOSE
     Indication: Type 2 diabetes mellitus
     Route: 048
  3. METOPROLOL SUCCINATE [Suspect]
     Active Substance: METOPROLOL SUCCINATE
     Indication: Hypertension
     Route: 048
  4. RIVAROXABAN [Suspect]
     Active Substance: RIVAROXABAN
     Indication: Atrial fibrillation
     Route: 048
  5. RIVAROXABAN [Suspect]
     Active Substance: RIVAROXABAN
     Indication: Coronary artery disease

REACTIONS (22)
  - Tachypnoea [Unknown]
  - Temperature intolerance [Unknown]
  - Pyrexia [Unknown]
  - Dyschezia [Unknown]
  - Dysuria [Unknown]
  - Insomnia [Unknown]
  - Cough [Unknown]
  - Sputum abnormal [Unknown]
  - Chest discomfort [Unknown]
  - Oedema peripheral [Unknown]
  - Asthenia [Unknown]
  - Restlessness [Unknown]
  - Arthralgia [Unknown]
  - Pollakiuria [Unknown]
  - Urine output decreased [Unknown]
  - Micturition urgency [Unknown]
  - Chills [Unknown]
  - Dizziness [Unknown]
  - Abdominal pain [Unknown]
  - Decreased appetite [Unknown]
  - Nausea [Unknown]
  - Vomiting [Unknown]
